FAERS Safety Report 25109428 (Version 1)
Quarter: 2025Q1

REPORT INFORMATION
  Report Type: Report from Study
  Country: US (occurrence: US)
  Receive Date: 20250323
  Receipt Date: 20250323
  Transmission Date: 20250409
  Serious: Yes (Hospitalization, Other)
  Sender: ALEXION PHARMACEUTICALS
  Company Number: US-AstraZeneca-CH-00832397A

PATIENT

DRUGS (1)
  1. ULTOMIRIS [Suspect]
     Active Substance: RAVULIZUMAB-CWVZ
     Indication: Atypical haemolytic uraemic syndrome
     Route: 065

REACTIONS (6)
  - Disorientation [Recovered/Resolved]
  - Confusional state [Recovered/Resolved]
  - Dementia Alzheimer^s type [Unknown]
  - Cognitive disorder [Unknown]
  - Concussion [Unknown]
  - Depression [Unknown]
